FAERS Safety Report 6882219-3 (Version None)
Quarter: 2010Q3

REPORT INFORMATION
  Report Type: 
  Country: None (occurrence: None)
  Receive Date: 20100702
  Receipt Date: 20091202
  Transmission Date: 20110219
  Serious: Yes (Other)
  Sender: FDA-Public Use
  Company Number: 2009308870

PATIENT
  Sex: Female
  Weight: 70.3 kg

DRUGS (2)
  1. ZOLOFT [Suspect]
     Dosage: 50 MG, 1X/DAY, ORAL
     Route: 048
     Dates: start: 20050101
  2. LISDEXAMFETAMINE DIMESYLATE (LISDECAMFETAMINE DIMESYLATE) [Concomitant]

REACTIONS (5)
  - ANXIETY [None]
  - BRUXISM [None]
  - DEPRESSION [None]
  - FATIGUE [None]
  - HEADACHE [None]
